FAERS Safety Report 23328605 (Version 2)
Quarter: 2023Q4

REPORT INFORMATION
  Report Type: Report from Study
  Country: JP (occurrence: JP)
  Receive Date: 20231221
  Receipt Date: 20231222
  Transmission Date: 20240110
  Serious: Yes (Hospitalization)
  Sender: FDA-Public Use
  Company Number: JP-SA-2023SA394260

PATIENT
  Age: 11 Year
  Sex: Male

DRUGS (17)
  1. DUPILUMAB [Suspect]
     Active Substance: DUPILUMAB
     Indication: Dermatitis atopic
     Dosage: UNK
     Route: 058
  2. BETNEVATE [Concomitant]
     Indication: Dermatitis atopic
     Dosage: 1 G, PRN
     Route: 003
     Dates: start: 20231011
  3. MYSER [DIFLUPREDNATE] [Concomitant]
     Indication: Dermatitis atopic
     Dosage: 0.5 G, PRN
     Route: 003
     Dates: start: 20231011
  4. RINDERON V [Concomitant]
     Active Substance: BETAMETHASONE VALERATE
     Indication: Dermatitis atopic
     Dosage: 0.5 G, PRN
     Route: 003
     Dates: start: 20230906
  5. LOCOID [Concomitant]
     Active Substance: HYDROCORTISONE BUTYRATE
     Indication: Product used for unknown indication
     Dosage: UNK
     Route: 065
  6. PREDNISOLONE VALEROACETATE [Concomitant]
     Indication: Product used for unknown indication
     Dosage: UNK
     Route: 065
  7. OLOPATADINE HYDROCHLORIDE [Concomitant]
     Active Substance: OLOPATADINE HYDROCHLORIDE
     Indication: Dermatitis atopic
     Dosage: 20 MG, BID
     Route: 048
     Dates: start: 20200613
  8. GLYCOSAMINOGLYCANS [Concomitant]
     Active Substance: GLYCOSAMINOGLYCANS
     Indication: Dermatitis atopic
     Dosage: 1 G, BID
     Route: 003
     Dates: start: 20230809
  9. GLYCOSAMINOGLYCANS [Concomitant]
     Active Substance: GLYCOSAMINOGLYCANS
     Indication: Dermatitis atopic
     Dosage: 15 G, BID
     Route: 003
     Dates: start: 20230906
  10. NADIFLOXACIN [Concomitant]
     Active Substance: NADIFLOXACIN
     Indication: Dermatitis atopic
     Dosage: 0.5 G, PRN
     Route: 003
     Dates: start: 20230809
  11. HEPARINOID [Concomitant]
     Indication: Dermatitis atopic
     Dosage: 10 G, BID
     Route: 003
     Dates: start: 20230809, end: 20231203
  12. PETROLATUM [Concomitant]
     Active Substance: PETROLATUM
     Indication: Dermatitis atopic
     Dosage: 1 G, BID
     Route: 003
     Dates: start: 20231108
  13. HEPARINOID [Concomitant]
     Indication: Dermatitis atopic
     Dosage: 12 G, BID
     Route: 003
     Dates: start: 20231204
  14. ZINC OXIDE [Concomitant]
     Active Substance: ZINC OXIDE
     Indication: Dermatitis atopic
     Dosage: 0.5 G, BID
     Route: 003
     Dates: start: 20231204, end: 20231208
  15. FLUTICASONE FUROATE [Concomitant]
     Active Substance: FLUTICASONE FUROATE
     Indication: Rhinitis allergic
     Dosage: 1 SPRAY, QD
     Route: 045
     Dates: start: 20231108
  16. MIYA-BM [Concomitant]
     Active Substance: CLOSTRIDIUM BUTYRICUM SPORES STRAIN M-55
     Indication: Diarrhoea
     Dosage: 1.5 G, TID
     Route: 048
     Dates: start: 20200131
  17. HERBALS [Concomitant]
     Active Substance: HERBALS
     Indication: Prophylaxis
     Dosage: 9 DF, TID
     Route: 048
     Dates: start: 20221119

REACTIONS (1)
  - Impetigo [Recovered/Resolved]

NARRATIVE: CASE EVENT DATE: 20231204
